FAERS Safety Report 6137364-7 (Version None)
Quarter: 2009Q1

REPORT INFORMATION
  Report Type: 
  Country: None (occurrence: None)
  Receive Date: 20090325
  Receipt Date: 20081027
  Transmission Date: 20090719
  Serious: Yes (Hospitalization)
  Sender: FDA-Public Use
  Company Number: ACETADOTE_046

PATIENT
  Age: 16 Year
  Sex: Female

DRUGS (1)
  1. ACETADOTE [Suspect]
     Indication: OVERDOSE
     Dosage: 50CC INFUSION
     Dates: start: 20081027

REACTIONS (1)
  - INFUSION SITE EXTRAVASATION [None]
